FAERS Safety Report 5375447-X (Version None)
Quarter: 2007Q2

REPORT INFORMATION
  Report Type: 
  Country: None (occurrence: None)
  Receive Date: 20070629
  Receipt Date: 20070619
  Transmission Date: 20071010
  Serious: Yes (Other)
  Sender: FDA-Public Use
  Company Number: GB-BOEHRINGER INGELHEIM PHARMACEUTICALS, INC.-2007-BP-15513YA

PATIENT
  Sex: Male

DRUGS (1)
  1. FLOMAXTRA XL (TAMSULOSIN) ORODISPERSABLE CR TABLET 0.4MG [Suspect]
     Indication: BENIGN PROSTATIC HYPERPLASIA
     Route: 048

REACTIONS (1)
  - LIVER FUNCTION TEST ABNORMAL [None]
